FAERS Safety Report 4853225-5 (Version None)
Quarter: 2005Q4

REPORT INFORMATION
  Report Type: 
  Country: None (occurrence: None)
  Receive Date: 20051213
  Receipt Date: 20051213
  Transmission Date: 20060501
  Serious: Yes (Death)
  Sender: FDA-Public Use
  Company Number: None

PATIENT

DRUGS (2)
  1. CLOFARABINE [Suspect]
     Indication: ACUTE LYMPHOCYTIC LEUKAEMIA
     Dosage: 52 MG/M2 = 54MG IV Q DAY X 5 DAYS
     Route: 042
     Dates: start: 20050930, end: 20051004
  2. CLOFARABINE [Suspect]
     Indication: LEUKAEMIA RECURRENT
     Dosage: 52 MG/M2 = 54MG IV Q DAY X 5 DAYS
     Route: 042
     Dates: start: 20050930, end: 20051004

REACTIONS (3)
  - HEPATIC FAILURE [None]
  - MULTI-ORGAN FAILURE [None]
  - RENAL FAILURE [None]
